FAERS Safety Report 7238260-4 (Version None)
Quarter: 2011Q1

REPORT INFORMATION
  Report Type: 
  Country: None (occurrence: None)
  Receive Date: 20110121
  Receipt Date: 20110117
  Transmission Date: 20110831
  Serious: No
  Sender: FDA-Public Use
  Company Number: US-PFIZER INC-2011012296

PATIENT
  Age: 49 Year
  Sex: Female

DRUGS (4)
  1. JANUMET [Suspect]
     Dosage: 50-1000
  2. LIPITOR [Suspect]
     Dosage: UNK
  3. SYNTHROID [Suspect]
     Dosage: 25 UG, UNK
  4. GLIPIZIDE [Suspect]
     Dosage: 2.5

REACTIONS (2)
  - FEELING ABNORMAL [None]
  - RASH [None]
